FAERS Safety Report 19477093 (Version 7)
Quarter: 2022Q3

REPORT INFORMATION
  Report Type: Report from Study
  Country: CO (occurrence: CO)
  Receive Date: 20210630
  Receipt Date: 20220701
  Transmission Date: 20221026
  Serious: Yes (Other)
  Sender: FDA-Public Use
  Company Number: PHHY2015CO137360

PATIENT
  Age: 48 Year
  Sex: Male
  Weight: 76 kg

DRUGS (6)
  1. SANDOSTATIN LAR DEPOT [Suspect]
     Active Substance: OCTREOTIDE ACETATE
     Indication: Acromegaly
     Dosage: 30 MG, QMO
     Route: 030
     Dates: start: 20120901
  2. SANDOSTATIN LAR DEPOT [Suspect]
     Active Substance: OCTREOTIDE ACETATE
     Indication: Neuroendocrine tumour
     Dosage: 30 MG, QMO
     Route: 030
     Dates: start: 20210713
  3. SANDOSTATIN LAR DEPOT [Suspect]
     Active Substance: OCTREOTIDE ACETATE
     Indication: Gastroenteropancreatic neuroendocrine tumour disease
  4. LOSARTAN [Suspect]
     Active Substance: LOSARTAN
     Indication: Hypertension
     Dosage: 50 MG, Q24H
     Route: 048
     Dates: start: 2017
  5. DOLEX [Concomitant]
     Active Substance: IBUPROFEN
     Indication: Product used for unknown indication
     Dosage: UNK
     Route: 065
  6. SYMBICORT [Concomitant]
     Active Substance: BUDESONIDE\FORMOTEROL FUMARATE DIHYDRATE
     Indication: Asthma
     Dosage: UNK, QD (1 PUFF)
     Route: 048
     Dates: start: 2011

REACTIONS (17)
  - Immunosuppression [Unknown]
  - Ear infection [Unknown]
  - Viral upper respiratory tract infection [Recovering/Resolving]
  - Malaise [Unknown]
  - Apathy [Unknown]
  - Oropharyngeal plaque [Unknown]
  - Pharyngeal inflammation [Unknown]
  - Respiratory disorder [Unknown]
  - Influenza [Unknown]
  - Nasopharyngitis [Recovered/Resolved]
  - Diarrhoea [Unknown]
  - Influenza [Recovered/Resolved]
  - Myalgia [Recovered/Resolved]
  - Flushing [Recovered/Resolved]
  - Headache [Recovered/Resolved]
  - COVID-19 [Unknown]
  - Infection [Unknown]

NARRATIVE: CASE EVENT DATE: 20150910
